FAERS Safety Report 15889024 (Version 2)
Quarter: 2019Q1

REPORT INFORMATION
  Report Type: Spontaneous
  Country: US (occurrence: US)
  Receive Date: 20190130
  Receipt Date: 20190204
  Transmission Date: 20190417
  Serious: Yes (Other)
  Sender: FDA-Public Use
  Company Number: US-PFIZER INC-2019037383

PATIENT
  Age: 58 Year
  Sex: Male

DRUGS (3)
  1. DOXORUBICIN HCL [Suspect]
     Active Substance: DOXORUBICIN HYDROCHLORIDE
     Indication: SPINDLE CELL SARCOMA
     Dosage: 75 MG/M2, CYCLIC (TWO CYCLES)
     Dates: start: 201707
  2. MESNA. [Suspect]
     Active Substance: MESNA
     Indication: SPINDLE CELL SARCOMA
     Dosage: UNK UNK, CYCLIC (TWO CYCLES)
     Dates: start: 201707
  3. IFOSFAMIDE. [Suspect]
     Active Substance: IFOSFAMIDE
     Indication: SPINDLE CELL SARCOMA
     Dosage: 7500 MG/M2, CYCLIC (TWO CYCLES)
     Dates: start: 201707

REACTIONS (2)
  - Neutropenia [Recovered/Resolved]
  - Anaemia [Recovered/Resolved]

NARRATIVE: CASE EVENT DATE: 201707
